FAERS Safety Report 9270813 (Version 1)
Quarter: 2013Q2

REPORT INFORMATION
  Report Type: Spontaneous
  Country: US (occurrence: US)
  Receive Date: 20130503
  Receipt Date: 20130503
  Transmission Date: 20140414
  Serious: No
  Sender: FDA-Public Use
  Company Number: US-ASTRAZENECA-2013SE26897

PATIENT
  Age: 63 Year
  Sex: Male
  Weight: 88 kg

DRUGS (3)
  1. NEXIUM [Suspect]
     Indication: GASTROOESOPHAGEAL REFLUX DISEASE
     Dosage: DAILY
     Route: 048
     Dates: end: 201210
  2. OMEPRAZOLE OTC [Suspect]
     Indication: GASTROOESOPHAGEAL REFLUX DISEASE
     Route: 048
     Dates: start: 201210
  3. CIALIS [Concomitant]

REACTIONS (4)
  - Throat irritation [Unknown]
  - Dry throat [Unknown]
  - Drug dose omission [Unknown]
  - Drug ineffective [Unknown]
